FAERS Safety Report 9247599 (Version 1)
Quarter: 2013Q2

REPORT INFORMATION
  Report Type: Spontaneous
  Country: US (occurrence: None)
  Receive Date: 20130419
  Receipt Date: 20130419
  Transmission Date: 20140414
  Serious: Yes (Death)
  Sender: FDA-Public Use
  Company Number: None

PATIENT
  Age: 58 Year
  Sex: Male
  Weight: 101 kg

DRUGS (1)
  1. RIVAROXABAN [Suspect]
     Indication: MITRAL VALVE REPLACEMENT
     Route: 048

REACTIONS (2)
  - Subarachnoid haemorrhage [None]
  - Cerebral haematoma [None]
